FAERS Safety Report 5059786-8 (Version None)
Quarter: 2006Q3

REPORT INFORMATION
  Report Type: 
  Country: None (occurrence: None)
  Receive Date: 20060724
  Receipt Date: 20060719
  Transmission Date: 20061208
  Serious: Yes (Congenital Anomaly)
  Sender: FDA-Public Use
  Company Number: US-GLAXOSMITHKLINE-A0613028A

PATIENT
  Sex: Female
  Weight: 3.7 kg

DRUGS (3)
  1. LAMICTAL [Suspect]
     Indication: EPILEPSY
     Dates: start: 20050611, end: 20051217
  2. KEPPRA [Concomitant]
     Indication: EPILEPSY
     Dates: start: 20050611, end: 20051027
  3. PRIMACARE [Concomitant]
     Dates: start: 20050601

REACTIONS (2)
  - CONGENITAL ANOMALY [None]
  - DRUG EXPOSURE DURING PREGNANCY [None]
